FAERS Safety Report 19754353 (Version 1)
Quarter: 2021Q3

REPORT INFORMATION
  Report Type: Spontaneous
  Country: US (occurrence: US)
  Receive Date: 20210825
  Receipt Date: 20210825
  Transmission Date: 20211014
  Serious: Yes (Hospitalization)
  Sender: FDA-Public Use
  Company Number: None

PATIENT
  Age: 3 Year
  Sex: Male
  Weight: 15.5 kg

DRUGS (5)
  1. ZINECARD [Suspect]
     Active Substance: DEXRAZOXANE HYDROCHLORIDE
     Dates: end: 20210811
  2. HYDROCORTISONE. [Suspect]
     Active Substance: HYDROCORTISONE
     Dates: end: 20210803
  3. CYTARABINE. [Suspect]
     Active Substance: CYTARABINE
     Dates: end: 20210809
  4. MITOXANTRONE HYDROCHLORIDE. [Suspect]
     Active Substance: MITOXANTRONE HYDROCHLORIDE
     Dates: end: 20210811
  5. METHOTREXATE. [Suspect]
     Active Substance: METHOTREXATE
     Dates: end: 20210803

REACTIONS (10)
  - Clostridium test positive [None]
  - Hypokalaemia [None]
  - Mucosal inflammation [None]
  - Abdominal pain [None]
  - Streptococcus test positive [None]
  - Neutropenia [None]
  - Diarrhoea [None]
  - Enterocolitis [None]
  - Pyrexia [None]
  - Blood culture positive [None]

NARRATIVE: CASE EVENT DATE: 20210818
